FAERS Safety Report 18223551 (Version 1)
Quarter: 2020Q3

REPORT INFORMATION
  Report Type: Spontaneous
  Country: CA (occurrence: CA)
  Receive Date: 20200902
  Receipt Date: 20200902
  Transmission Date: 20201103
  Serious: No
  Sender: FDA-Public Use
  Company Number: None

PATIENT
  Age: 73 Year
  Sex: Female
  Weight: 80 kg

DRUGS (6)
  1. PERINDOPRIL ERBUMINE (NON?SPECIFIC) [Concomitant]
     Active Substance: PERINDOPRIL ERBUMINE
  2. SIV?EZETIMIBE 10 MG TAB [Suspect]
     Active Substance: EZETIMIBE
     Indication: BLOOD CHOLESTEROL INCREASED
     Dosage: ?          QUANTITY:1 TABLET(S);?
     Route: 048
     Dates: start: 20200515
  3. VITAMIN D [Concomitant]
     Active Substance: VITAMIN D NOS
  4. VITAMIN A [Concomitant]
     Active Substance: VITAMIN A
  5. CALCIUM [Concomitant]
     Active Substance: CALCIUM
  6. FISH OIL [Concomitant]
     Active Substance: FISH OIL

REACTIONS (4)
  - Nightmare [None]
  - Quality of life decreased [None]
  - Depression [None]
  - Poor quality sleep [None]

NARRATIVE: CASE EVENT DATE: 20200902
